FAERS Safety Report 6380182-5 (Version None)
Quarter: 2009Q3

REPORT INFORMATION
  Report Type: 
  Country: None (occurrence: None)
  Receive Date: 20090929
  Receipt Date: 20090921
  Transmission Date: 20100115
  Serious: Yes (Hospitalization)
  Sender: FDA-Public Use
  Company Number: US-ELI_LILLY_AND_COMPANY-US200909000507

PATIENT
  Sex: Male

DRUGS (4)
  1. HUMALOG [Suspect]
     Dosage: UNK, UNK
     Dates: start: 20080317, end: 20090831
  2. HUMALOG [Suspect]
     Dosage: UNK, UNK
  3. HUMALOG [Suspect]
     Dosage: UNK, UNK
  4. HUMALOG [Suspect]
     Dates: start: 19890101

REACTIONS (2)
  - BACTERAEMIA [None]
  - CELLULITIS [None]
